FAERS Safety Report 5094759-0 (Version None)
Quarter: 2006Q3

REPORT INFORMATION
  Report Type: 
  Country: None (occurrence: None)
  Receive Date: 20060731
  Receipt Date: 20060418
  Transmission Date: 20061208
  Serious: No
  Sender: FDA-Public Use
  Company Number: 2006PV012356

PATIENT
  Age: 18 Year
  Sex: Female

DRUGS (3)
  1. BYETTA [Suspect]
     Indication: GLUCOSE TOLERANCE IMPAIRED
     Dosage: SEE IMAGE
     Route: 058
  2. BYETTA [Suspect]
     Indication: POLYCYSTIC OVARIES
     Dosage: SEE IMAGE
     Route: 058
  3. GLUCOPHAGE [Concomitant]

REACTIONS (5)
  - DIZZINESS [None]
  - LETHARGY [None]
  - NAUSEA [None]
  - VOMITING [None]
  - WEIGHT DECREASED [None]
